FAERS Safety Report 6734976-4 (Version None)
Quarter: 2010Q2

REPORT INFORMATION
  Report Type: 
  Country: None (occurrence: None)
  Receive Date: 20100521
  Receipt Date: 20100518
  Transmission Date: 20101027
  Serious: Yes (Hospitalization)
  Sender: FDA-Public Use
  Company Number: IE-PFIZER INC-2010061973

PATIENT
  Age: 45 Year
  Sex: Male

DRUGS (6)
  1. CHAMPIX [Suspect]
     Indication: SMOKING CESSATION THERAPY
     Dosage: 2 MG, 1X/DAY
     Dates: end: 20100401
  2. LITHIUM [Concomitant]
  3. PHENOBARBITAL TAB [Concomitant]
     Dosage: UNK
  4. CARBAMAZEPINE [Concomitant]
     Dosage: UNK
  5. OLANZAPINE [Concomitant]
     Dosage: UNK
  6. ZUCLOPENTHIXOL [Concomitant]
     Dosage: 25 MG, UNK

REACTIONS (3)
  - AFFECTIVE DISORDER [None]
  - DEPRESSED MOOD [None]
  - SUICIDAL IDEATION [None]
